FAERS Safety Report 5921430 (Version 3)
Quarter: 2023Q2

REPORT INFORMATION
  Report Type: Report from Study
  Country: US (occurrence: None)
  Receive Date: 20051111
  Receipt Date: 20230425
  Transmission Date: 20230721
  Serious: Yes (Death)
  Sender: FDA-Public Use
  Company Number: None

PATIENT
  Age: 79 Year
  Sex: Male

DRUGS (6)
  1. INTERFERON ALFA-2A [Suspect]
     Active Substance: INTERFERON ALFA-2A
     Indication: Renal cell carcinoma
     Dosage: THREE TIMES A WEEK, EVERY OTHER DAY
     Route: 030
     Dates: start: 20050113
  2. WARFARIN SODIUM [Concomitant]
     Active Substance: WARFARIN SODIUM
     Route: 048
  3. ARICEPT [Concomitant]
     Active Substance: DONEPEZIL HYDROCHLORIDE
     Route: 048
  4. LEXAPRO [Concomitant]
     Active Substance: ESCITALOPRAM OXALATE
     Route: 048
  5. ASPIRIN [Concomitant]
     Active Substance: ASPIRIN
     Route: 048
  6. COZAAR [Concomitant]
     Active Substance: LOSARTAN POTASSIUM
     Route: 048

REACTIONS (1)
  - Cardiac disorder [Fatal]

NARRATIVE: CASE EVENT DATE: 20050122
